FAERS Safety Report 20316326 (Version 1)
Quarter: 2022Q1

REPORT INFORMATION
  Report Type: Other
  Country: RU (occurrence: RU)
  Receive Date: 20220110
  Receipt Date: 20220110
  Transmission Date: 20220424
  Serious: Yes (Other)
  Sender: FDA-Public Use
  Company Number: RU-GLENMARK PHARMACEUTICALS-2022GMK069677

PATIENT

DRUGS (5)
  1. LEVOFLOXACIN [Suspect]
     Active Substance: LEVOFLOXACIN
     Indication: Osteomyelitis chronic
     Dosage: 500 MILLIGRAM, BID
     Route: 048
     Dates: start: 20211218, end: 20211221
  2. XARELTO [Concomitant]
     Active Substance: RIVAROXABAN
     Indication: Thrombosis prophylaxis
     Dosage: 10 MILLIGRAM, SINGLE
     Route: 048
     Dates: start: 20211215
  3. LOSARTAN [Concomitant]
     Active Substance: LOSARTAN
     Indication: Hypertension
     Dosage: 25 MILLIGRAM, SINGLE
     Route: 048
     Dates: start: 20211215
  4. BISOPROLOL PRANA [Concomitant]
     Indication: Hypertension
     Dosage: 5 MILLIGRAM, SINGLE
     Route: 048
     Dates: start: 20211215
  5. TRAMADOL GR [Concomitant]
     Indication: Analgesic therapy
     Dosage: 100 MILLIGRAM, SINGLE
     Route: 030
     Dates: start: 20211215

REACTIONS (6)
  - Oropharyngeal pain [Recovering/Resolving]
  - Burning sensation [Recovering/Resolving]
  - Lip oedema [Recovering/Resolving]
  - Angioedema [Recovering/Resolving]
  - Dyspnoea [Recovering/Resolving]
  - Vomiting [Recovering/Resolving]

NARRATIVE: CASE EVENT DATE: 20211221
